FAERS Safety Report 6180239-8 (Version None)
Quarter: 2009Q2

REPORT INFORMATION
  Report Type: 
  Country: None (occurrence: None)
  Receive Date: 20090504
  Receipt Date: 20090420
  Transmission Date: 20091009
  Serious: Yes (Hospitalization)
  Sender: FDA-Public Use
  Company Number: 8044990

PATIENT
  Age: 69 Year
  Sex: Male
  Weight: 87 kg

DRUGS (10)
  1. KEPPRA [Suspect]
     Indication: CONVULSION
     Dosage: 375 MG 2/D PO
     Route: 048
  2. CELEXA [Concomitant]
  3. DIAZEPAM [Concomitant]
  4. DARVOCET-N 100 [Concomitant]
  5. ZOCOR [Concomitant]
  6. ASPIRIN [Concomitant]
  7. PROTONIX [Concomitant]
  8. ATENOLOL [Concomitant]
  9. NORVASC [Concomitant]
  10. ALLOPURINOL [Concomitant]

REACTIONS (4)
  - BACK PAIN [None]
  - INTERVERTEBRAL DISCITIS [None]
  - MEDICATION ERROR [None]
  - WRONG TECHNIQUE IN DRUG USAGE PROCESS [None]
